FAERS Safety Report 18573714 (Version 1)
Quarter: 2020Q4

REPORT INFORMATION
  Report Type: Spontaneous
  Country: US (occurrence: US)
  Receive Date: 20201203
  Receipt Date: 20201203
  Transmission Date: 20210114
  Serious: No
  Sender: FDA-Public Use
  Company Number: US-SA-2020SA343912

PATIENT

DRUGS (21)
  1. CALCIUM [Concomitant]
     Active Substance: CALCIUM
  2. GLUCOSAMINE + CHONDORITIN [Concomitant]
  3. FISH OIL [Concomitant]
     Active Substance: FISH OIL
  4. RISEDRONATE SODIUM. [Concomitant]
     Active Substance: RISEDRONATE SODIUM
  5. SINGULAIR [Concomitant]
     Active Substance: MONTELUKAST SODIUM
  6. SYMBICORT [Concomitant]
     Active Substance: BUDESONIDE\FORMOTEROL FUMARATE DIHYDRATE
  7. NAPROXEN [NAPROXEN SODIUM] [Concomitant]
     Active Substance: NAPROXEN SODIUM
  8. OMEPRAZOLE. [Concomitant]
     Active Substance: OMEPRAZOLE
  9. PRESERVISION AREDS 2 [Concomitant]
     Active Substance: MINERALS\VITAMINS
  10. POTASSIUM CHLORIDE. [Concomitant]
     Active Substance: POTASSIUM CHLORIDE
  11. BENZONATATE. [Concomitant]
     Active Substance: BENZONATATE
  12. PROAIR HFA [Concomitant]
     Active Substance: ALBUTEROL SULFATE
  13. SUMATRIPTAN SUCCINATE. [Interacting]
     Active Substance: SUMATRIPTAN SUCCINATE
  14. HYDROCHLOROTHIAZIDE. [Concomitant]
     Active Substance: HYDROCHLOROTHIAZIDE
  15. FIBERCON [Concomitant]
     Active Substance: CALCIUM POLYCARBOPHIL
  16. OXYBUTYNIN CHLORIDE. [Concomitant]
     Active Substance: OXYBUTYNIN CHLORIDE
  17. VERAPAMIL HCL [Concomitant]
     Active Substance: VERAPAMIL HYDROCHLORIDE
  18. MULTIVITAMINS [VITAMINS NOS] [Concomitant]
     Active Substance: VITAMINS
     Dosage: DAILY
  19. DUPIXENT [Suspect]
     Active Substance: DUPILUMAB
     Dosage: 200 MG, QOW
     Route: 058
     Dates: start: 201910
  20. TERAZOSIN HCL [Concomitant]
     Active Substance: TERAZOSIN HYDROCHLORIDE
  21. VITAMIN D [COLECALCIFEROL] [Concomitant]
     Active Substance: CHOLECALCIFEROL

REACTIONS (2)
  - Cough [Unknown]
  - Injection site bruising [Unknown]
